FAERS Safety Report 13601594 (Version 4)
Quarter: 2017Q3

REPORT INFORMATION
  Report Type: Spontaneous
  Country: FR (occurrence: FR)
  Receive Date: 20170601
  Receipt Date: 20170719
  Transmission Date: 20171127
  Serious: Yes (Death, Other)
  Sender: FDA-Public Use
  Company Number: PHHY2017FR077242

PATIENT
  Age: 59 Year
  Sex: Female

DRUGS (7)
  1. ZYKADIA [Suspect]
     Active Substance: CERITINIB
     Indication: NON-SMALL CELL LUNG CANCER
     Dosage: 750 MG, QD
     Route: 048
     Dates: start: 201703
  2. VOGALENE [Concomitant]
     Active Substance: METOPIMAZINE
     Indication: PRODUCT USED FOR UNKNOWN INDICATION
     Dosage: 7.5 MG, UNK (1 TO 4 PER DAY)
     Route: 048
  3. ZYKADIA [Suspect]
     Active Substance: CERITINIB
     Indication: METASTASIS
  4. MOTILIUM [Concomitant]
     Active Substance: DOMPERIDONE
     Indication: PRODUCT USED FOR UNKNOWN INDICATION
     Dosage: UNK  (1TO 3 PER DAY)
     Route: 065
  5. PRIMPERAN [Concomitant]
     Active Substance: METOCLOPRAMIDE HYDROCHLORIDE
     Indication: PRODUCT USED FOR UNKNOWN INDICATION
     Dosage: UNK
     Route: 048
  6. ZYKADIA [Suspect]
     Active Substance: CERITINIB
     Indication: LYMPHANGITIS
     Dosage: 600 MG, QD
     Route: 048
     Dates: end: 20170515
  7. IMODIUM [Concomitant]
     Active Substance: LOPERAMIDE HYDROCHLORIDE
     Indication: DIARRHOEA
     Dosage: UNK (2 IF DIARRHEA OCCURED )
     Route: 048

REACTIONS (15)
  - Lipase increased [Unknown]
  - Hepatitis [Recovered/Resolved]
  - Gamma-glutamyltransferase increased [Unknown]
  - Dyspepsia [Unknown]
  - Amylase increased [Unknown]
  - Death [Fatal]
  - Non-small cell lung cancer [Unknown]
  - Alanine aminotransferase increased [Unknown]
  - Pancreatitis [Recovered/Resolved]
  - Malignant neoplasm progression [Unknown]
  - General physical health deterioration [Unknown]
  - Nausea [Unknown]
  - Vomiting [Unknown]
  - Aspartate aminotransferase increased [Unknown]
  - Blood bilirubin increased [Unknown]

NARRATIVE: CASE EVENT DATE: 20170330
